FAERS Safety Report 10085533 (Version 2)
Quarter: 2014Q2

REPORT INFORMATION
  Report Type: Spontaneous
  Country: US (occurrence: US)
  Receive Date: 20140418
  Receipt Date: 20140520
  Transmission Date: 20141212
  Serious: Yes (Other)
  Sender: FDA-Public Use
  Company Number: US-BIOGENIDEC-2014BI034903

PATIENT
  Sex: Female
  Weight: 52 kg

DRUGS (11)
  1. TECFIDERA [Suspect]
     Indication: MULTIPLE SCLEROSIS
     Route: 048
     Dates: start: 2013
  2. AVONEX [Concomitant]
     Indication: MULTIPLE SCLEROSIS
     Route: 030
  3. LAMOTRIGINE [Concomitant]
  4. BACLOFEN [Concomitant]
  5. DIAZEPAM [Concomitant]
  6. HYDROCODONE [Concomitant]
  7. AMBIEN [Concomitant]
  8. ZOFRAN [Concomitant]
  9. PRIMIDONE [Concomitant]
  10. IBUPROFEN [Concomitant]
  11. PHENERGAN [Concomitant]

REACTIONS (1)
  - White blood cell count decreased [Not Recovered/Not Resolved]
